FAERS Safety Report 4930464-6 (Version None)
Quarter: 2006Q1

REPORT INFORMATION
  Report Type: 
  Country: None (occurrence: None)
  Receive Date: 20060118
  Receipt Date: 20050610
  Transmission Date: 20060701
  Serious: No
  Sender: FDA-Public Use
  Company Number: 2005001111

PATIENT
  Age: 72 Year
  Sex: Female
  Weight: 70.7611 kg

DRUGS (5)
  1. TARCEVA [Suspect]
     Indication: LUNG ADENOCARCINOMA
     Dosage: 150 MG (QD), ORAL
     Route: 048
  2. NEURONTIN [Concomitant]
  3. VICOPROFEN [Concomitant]
  4. NEXIUM [Concomitant]
  5. DURAGESIC-100 [Concomitant]

REACTIONS (4)
  - ARTHRALGIA [None]
  - HEADACHE [None]
  - NAUSEA [None]
  - PAIN [None]
